FAERS Safety Report 5685044-4 (Version None)
Quarter: 2008Q1

REPORT INFORMATION
  Report Type: 
  Country: None (occurrence: None)
  Receive Date: 20080328
  Receipt Date: 19981207
  Transmission Date: 20080703
  Serious: Yes (Death, Hospitalization)
  Sender: FDA-Public Use
  Company Number: US-ROCHE-108197

PATIENT
  Age: 56 Year
  Sex: Male
  Weight: 87 kg

DRUGS (8)
  1. CYTOVENE [Suspect]
     Route: 048
     Dates: start: 19980801, end: 19981104
  2. TRIMETHOPRIM [Concomitant]
     Route: 048
     Dates: end: 19981130
  3. CELLCEPT [Concomitant]
     Route: 048
     Dates: end: 19981130
  4. PRILOSEC [Concomitant]
     Route: 048
     Dates: end: 19981130
  5. CLOTRIMAZOLE [Concomitant]
     Route: 048
     Dates: end: 19981130
  6. PREDNISONE TAB [Concomitant]
     Route: 048
     Dates: end: 19981130
  7. ORTHOCLONE OKT3 [Concomitant]
     Dates: end: 19981130
  8. ATGAM [Concomitant]
     Dates: end: 19981130

REACTIONS (4)
  - DEATH [None]
  - KIDNEY TRANSPLANT REJECTION [None]
  - NEPHROLITHIASIS [None]
  - RENAL IMPAIRMENT [None]
